FAERS Safety Report 23242622 (Version 4)
Quarter: 2024Q1

REPORT INFORMATION
  Report Type: Spontaneous
  Country: NZ (occurrence: NZ)
  Receive Date: 20231129
  Receipt Date: 20240131
  Transmission Date: 20240409
  Serious: Yes (Hospitalization, Other)
  Sender: FDA-Public Use
  Company Number: NZ-MYLANLABS-2023M1125586

PATIENT
  Age: 38 Year
  Sex: Male

DRUGS (5)
  1. CLOZARIL [Suspect]
     Active Substance: CLOZAPINE
     Indication: Schizophrenia
     Dosage: UNK
     Route: 048
     Dates: start: 20130405, end: 20230916
  2. CLOZARIL [Suspect]
     Active Substance: CLOZAPINE
     Indication: Abdominal pain
     Dosage: 300 MILLIGRAM, NOCTE
     Route: 048
     Dates: start: 2009, end: 20230915
  3. TERAZOSIN [Concomitant]
     Active Substance: TERAZOSIN HYDROCHLORIDE
     Indication: Salivary hypersecretion
     Dosage: 4 MILLIGRAM, NOCTE
     Route: 065
  4. DOCUSATE SODIUM AND SENNA [Concomitant]
     Active Substance: DOCUSATE SODIUM\SENNOSIDES
     Indication: Constipation
     Dosage: 2 DOSAGE FORM, BID
     Route: 065
  5. LACTULOSE [Concomitant]
     Active Substance: LACTULOSE
     Dosage: 15 MILLILITER, BID
     Route: 065

REACTIONS (5)
  - Volvulus of small bowel [Recovered/Resolved]
  - Intestinal obstruction [Recovered/Resolved]
  - Ileus paralytic [Unknown]
  - Thrombocytosis [Unknown]
  - Immature granulocyte count increased [Unknown]

NARRATIVE: CASE EVENT DATE: 20230916
